FAERS Safety Report 4682526-9 (Version None)
Quarter: 2005Q2

REPORT INFORMATION
  Report Type: 
  Country: None (occurrence: None)
  Receive Date: 20050602
  Receipt Date: 20050527
  Transmission Date: 20051028
  Serious: Yes (Death, Life-Threatening, Hospitalization, Other)
  Sender: FDA-Public Use
  Company Number: HQWYE617010MAY05

PATIENT
  Age: 59 Year
  Sex: Female
  Weight: 61.4 kg

DRUGS (6)
  1. TACROLIMUS, CONTROL FOR SIROLIMUS (TACROLIMUS, CONTROL FOR SIROLIMUS, [Suspect]
     Indication: PROPHYLAXIS AGAINST TRANSPLANT REJECTION
     Dosage: 4 MG 2X PER 1 DAY; NASOGASTRIC
     Dates: start: 20050325, end: 20050505
  2. CORTICOSTEROIDS (CORTICOSTEROIDS, ) [Suspect]
     Dosage: ORAL
     Route: 048
  3. MYCOPHENOLATE MOFETIL (MYCOPHENOLATE MOFETIL, ) [Suspect]
     Dosage: ORAL
     Route: 048
  4. METRONIDAZOLE [Concomitant]
  5. BACTRIM [Concomitant]
  6. MEROPENEM (MEROPENEM) [Concomitant]

REACTIONS (16)
  - BLOOD PRESSURE DECREASED [None]
  - CARDIOMEGALY [None]
  - CONDITION AGGRAVATED [None]
  - DEEP VEIN THROMBOSIS [None]
  - GENERAL PHYSICAL HEALTH DETERIORATION [None]
  - HAEMODIALYSIS [None]
  - HAEMODYNAMIC INSTABILITY [None]
  - HAEMOGLOBIN DECREASED [None]
  - INFECTION [None]
  - PLATELET COUNT DECREASED [None]
  - PULMONARY EMBOLISM [None]
  - PULMONARY HYPERTENSION [None]
  - SEPTIC SHOCK [None]
  - VENTRICULAR DYSFUNCTION [None]
  - VENTRICULAR HYPERTROPHY [None]
  - WHITE BLOOD CELL COUNT DECREASED [None]
